FAERS Safety Report 12922700 (Version 1)
Quarter: 2016Q4

REPORT INFORMATION
  Report Type: Spontaneous
  Country: DE (occurrence: US)
  Receive Date: 20161108
  Receipt Date: 20161108
  Transmission Date: 20170207
  Serious: Yes (Life-Threatening, Hospitalization, Disabling)
  Sender: FDA-Public Use
  Company Number: None

PATIENT
  Age: 24 Year
  Sex: Male
  Weight: 107 kg

DRUGS (2)
  1. PROPECIA [Suspect]
     Active Substance: FINASTERIDE
     Indication: ALOPECIA
     Dosage: ?          QUANTITY:1 TABLET(S);?
     Route: 048
     Dates: start: 20130101, end: 20130331
  2. CIALIS [Concomitant]
     Active Substance: TADALAFIL

REACTIONS (20)
  - Ocular hyperaemia [None]
  - Erectile dysfunction [None]
  - Semen analysis abnormal [None]
  - Pallor [None]
  - Depression [None]
  - Unevaluable event [None]
  - Partner stress [None]
  - Anhedonia [None]
  - Spinal disorder [None]
  - Skin disorder [None]
  - Swelling face [None]
  - Weight increased [None]
  - Sleep disorder [None]
  - Tinnitus [None]
  - Parosmia [None]
  - Penis disorder [None]
  - Memory impairment [None]
  - Dysgeusia [None]
  - Suicidal ideation [None]
  - Eyelid disorder [None]

NARRATIVE: CASE EVENT DATE: 20130201
